FAERS Safety Report 6145703-6 (Version None)
Quarter: 2009Q2

REPORT INFORMATION
  Report Type: 
  Country: None (occurrence: None)
  Receive Date: 20090403
  Receipt Date: 20090319
  Transmission Date: 20091009
  Serious: Yes (Other)
  Sender: FDA-Public Use
  Company Number: 8044369

PATIENT
  Age: 50 Year
  Sex: Male

DRUGS (3)
  1. PREDNISOLONE [Suspect]
     Indication: CARDIAC SARCOIDOSIS
     Dosage: 30 MG/D
  2. PREDNISOLONE [Suspect]
     Indication: CARDIAC SARCOIDOSIS
     Dosage: 20 MG/D
  3. PREDNISOLONE [Suspect]

REACTIONS (3)
  - CONDITION AGGRAVATED [None]
  - EJECTION FRACTION DECREASED [None]
  - VENTRICULAR TACHYCARDIA [None]
